FAERS Safety Report 4562535-0 (Version None)
Quarter: 2005Q1

REPORT INFORMATION
  Report Type: 
  Country: None (occurrence: None)
  Receive Date: 20050127
  Receipt Date: 20050115
  Transmission Date: 20050727
  Serious: Yes (Other)
  Sender: FDA-Public Use
  Company Number: GB-JNJFOC-20050103711

PATIENT
  Age: 19 Year
  Sex: Male
  Weight: 92 kg

DRUGS (1)
  1. CONCERTA [Suspect]
     Indication: ATTENTION DEFICIT/HYPERACTIVITY DISORDER
     Route: 049
     Dates: start: 20040901, end: 20041201

REACTIONS (4)
  - DRUG WITHDRAWAL SYNDROME [None]
  - MOOD ALTERED [None]
  - ROAD TRAFFIC ACCIDENT [None]
  - SUDDEN ONSET OF SLEEP [None]
